FAERS Safety Report 9614387 (Version 1)
Quarter: 2013Q4

REPORT INFORMATION
  Report Type: Spontaneous
  Country: IT (occurrence: IT)
  Receive Date: 20131011
  Receipt Date: 20131011
  Transmission Date: 20140711
  Serious: Yes (Life-Threatening, Hospitalization)
  Sender: FDA-Public Use
  Company Number: IT-JNJFOC-20131005774

PATIENT
  Age: 36 Year
  Sex: Male

DRUGS (1)
  1. TOPIRAMATE [Suspect]
     Indication: EPILEPSY
     Route: 048

REACTIONS (13)
  - Heat stroke [Recovering/Resolving]
  - Platelet count decreased [Recovered/Resolved]
  - Metabolic acidosis [Recovered/Resolved]
  - Hyperkalaemia [Recovered/Resolved]
  - Muscle rigidity [Recovering/Resolving]
  - Visual impairment [Recovering/Resolving]
  - Myoclonus [Recovering/Resolving]
  - Cerebral ataxia [Not Recovered/Not Resolved]
  - Hypertension [Recovering/Resolving]
  - Hypertonia [Recovering/Resolving]
  - Nystagmus [Recovering/Resolving]
  - Tachycardia [Recovering/Resolving]
  - Tachypnoea [Recovering/Resolving]
